FAERS Safety Report 25151939 (Version 2)
Quarter: 2025Q3

REPORT INFORMATION
  Report Type: Spontaneous
  Country: EU (occurrence: EU)
  Receive Date: 20250402
  Receipt Date: 20250730
  Transmission Date: 20251021
  Serious: Yes (Congenital Anomaly)
  Sender: NOVARTIS
  Company Number: EU-002147023-NVSC2025BE052440

PATIENT
  Sex: Female
  Weight: 3.5 kg

DRUGS (1)
  1. KESIMPTA [Suspect]
     Active Substance: OFATUMUMAB
     Indication: Foetal exposure during pregnancy
     Route: 050

REACTIONS (2)
  - Cleft palate [Unknown]
  - Foetal exposure via father [Unknown]
